FAERS Safety Report 17701801 (Version 5)
Quarter: 2021Q2

REPORT INFORMATION
  Report Type: Report from Study
  Country: JP (occurrence: JP)
  Receive Date: 20200424
  Receipt Date: 20210628
  Transmission Date: 20210716
  Serious: Yes (Death, Hospitalization, Other)
  Sender: FDA-Public Use
  Company Number: JP-TAKEDA-2019TJP013559

PATIENT
  Age: 80 Year
  Sex: Male
  Weight: 54.6 kg

DRUGS (28)
  1. TRAMADOL HYDROCHLORIDE AND ACETAMINOPHEN [Concomitant]
     Active Substance: ACETAMINOPHEN\TRAMADOL HYDROCHLORIDE
     Indication: PAIN
     Dosage: 1 DOSAGE FORM, QID
     Route: 048
  2. SENNOSIDE A+B [Concomitant]
     Active Substance: SENNOSIDES A AND B
     Indication: CONSTIPATION
     Dosage: 24 MILLIGRAM, QD
     Route: 048
     Dates: start: 20180731
  3. AMITIZA [Concomitant]
     Active Substance: LUBIPROSTONE
     Dosage: 24 MICROGRAM, BID
     Route: 048
     Dates: start: 20201209
  4. BAYASPIRIN [Concomitant]
     Active Substance: ASPIRIN
     Indication: THROMBOSIS PROPHYLAXIS
     Dosage: 100 MILLIGRAM, QD
     Route: 048
     Dates: start: 20180118
  5. IXAZOMIB [Suspect]
     Active Substance: IXAZOMIB
     Indication: PLASMA CELL MYELOMA
     Dosage: 2.3 MILLIGRAM, 1/WEEK
     Route: 048
     Dates: start: 20190311, end: 20190416
  6. LENADEX [Suspect]
     Active Substance: DEXAMETHASONE ACETATE
     Indication: PLASMA CELL MYELOMA
     Dosage: 12 MILLIGRAM, 1/WEEK
     Route: 048
     Dates: start: 20190311, end: 20190416
  7. REBAMIPIDE [Concomitant]
     Active Substance: REBAMIPIDE
     Indication: GASTRIC MUCOSAL LESION
     Dosage: 100 MILLIGRAM, TID
     Route: 048
     Dates: start: 20180327
  8. BELSOMRA [Concomitant]
     Active Substance: SUVOREXANT
     Indication: INSOMNIA
     Dosage: 15 MILLIGRAM, QD
     Route: 048
     Dates: start: 20180731
  9. DAIPHEN [Concomitant]
     Active Substance: SULFAMETHOXAZOLE\TRIMETHOPRIM
     Indication: ANTIFUNGAL PROPHYLAXIS
     Dosage: 1 DOSAGE FORM, QD
     Route: 048
     Dates: start: 20190423, end: 20190614
  10. FERRUM [FERROUS FUMARATE] [Concomitant]
     Indication: IRON DEFICIENCY ANAEMIA
     Dosage: 100 MILLIGRAM, QD
     Route: 048
     Dates: start: 20190521
  11. METFORMIN HYDROCHLORIDE MT [Concomitant]
     Active Substance: METFORMIN HYDROCHLORIDE
     Indication: TYPE 2 DIABETES MELLITUS
     Dosage: 500 MILLIGRAM, QD
     Route: 048
     Dates: start: 20210112
  12. SILODOSIN. [Concomitant]
     Active Substance: SILODOSIN
     Indication: BENIGN PROSTATIC HYPERPLASIA
     Dosage: 8 MILLIGRAM, QD
     Route: 048
     Dates: start: 20210301
  13. TAKECAB TABLETS 20MG [Suspect]
     Active Substance: VONOPRAZAN FUMARATE
     Indication: PEPTIC ULCER
     Dosage: 20 MILLIGRAM, QD
     Route: 048
     Dates: start: 20180327
  14. AMBROXOL HYDROCHLORIDE [Concomitant]
     Active Substance: AMBROXOL HYDROCHLORIDE
     Indication: BRONCHITIS CHRONIC
     Dosage: 45 MILLIGRAM, QD
     Route: 048
     Dates: start: 20190624
  15. VORICONAZOLE. [Concomitant]
     Active Substance: VORICONAZOLE
     Indication: INFECTION PROPHYLAXIS
     Dosage: 100 MILLIGRAM, BID
     Route: 048
     Dates: start: 20200930
  16. NESINA [Suspect]
     Active Substance: ALOGLIPTIN BENZOATE
     Indication: TYPE 2 DIABETES MELLITUS
     Dosage: 25 MILLIGRAM, QD
     Route: 048
     Dates: start: 20180302
  17. ACICLOVIR [Concomitant]
     Active Substance: ACYCLOVIR
     Indication: ANTIVIRAL PROPHYLAXIS
     Dosage: 200 MILLIGRAM, QD
     Route: 048
     Dates: start: 20180417, end: 20190619
  18. PREDONINE [Concomitant]
     Active Substance: PREDNISOLONE
     Indication: CUTANEOUS VASCULITIS
     Dosage: 15 MILLIGRAM, QD
     Route: 048
     Dates: start: 20190425
  19. MONTELUKAST OD [Concomitant]
     Indication: ASTHMA
     Dosage: 10 MILLIGRAM, QD
     Route: 048
     Dates: start: 20190624
  20. AZANIN [Concomitant]
     Active Substance: AZATHIOPRINE
     Dosage: 75 MILLIGRAM, QD
     Route: 048
     Dates: start: 20210201
  21. FEBURIC [Concomitant]
     Active Substance: FEBUXOSTAT
     Indication: HYPERURICAEMIA
     Dosage: 20 MILLIGRAM, QD
     Route: 048
     Dates: start: 20180111
  22. THEOPHYLLINE [Concomitant]
     Active Substance: THEOPHYLLINE ANHYDROUS
     Indication: BRONCHITIS CHRONIC
     Dosage: 200 MILLIGRAM, QD
     Route: 048
     Dates: start: 20200629
  23. CARBOCISTEINE [Concomitant]
     Active Substance: CARBOCYSTEINE
     Indication: BRONCHITIS CHRONIC
     Dosage: 500 MILLIGRAM, TID
     Route: 048
     Dates: start: 20190624
  24. REVLIMID [Suspect]
     Active Substance: LENALIDOMIDE
     Indication: PLASMA CELL MYELOMA
     Dosage: 15 MILLIGRAM, QD
     Route: 048
     Dates: start: 20190311, end: 20190423
  25. AMITIZA [Concomitant]
     Active Substance: LUBIPROSTONE
     Indication: CONSTIPATION
     Dosage: 24 MICROGRAM, BID
     Route: 048
     Dates: start: 20180731
  26. LUNESTA [Concomitant]
     Active Substance: ESZOPICLONE
     Indication: INSOMNIA
     Dosage: 2 MILLIGRAM, QD
     Route: 048
     Dates: start: 20190202
  27. DERTOPICA [Concomitant]
     Indication: CUTANEOUS VASCULITIS
     Dosage: UNK UNK, BID
     Route: 062
     Dates: start: 20190423
  28. AMLODIPINE                         /00972402/ [Concomitant]
     Active Substance: AMLODIPINE BESYLATE
     Indication: HYPERTENSION
     Dosage: 5 MILLIGRAM, QD
     Route: 048

REACTIONS (6)
  - Arthralgia [Recovered/Resolved]
  - Acute respiratory failure [Recovered/Resolved]
  - Sciatica [Not Recovered/Not Resolved]
  - Interstitial lung disease [Fatal]
  - Henoch-Schonlein purpura [Recovered/Resolved]
  - Off label use [Unknown]

NARRATIVE: CASE EVENT DATE: 20180327
